FAERS Safety Report 7249795-2 (Version None)
Quarter: 2011Q1

REPORT INFORMATION
  Report Type: 
  Country: None (occurrence: None)
  Receive Date: 20110119
  Receipt Date: 20110119
  Transmission Date: 20110831
  Serious: Yes (Hospitalization, Disabling)
  Sender: FDA-Public Use
  Company Number: None

PATIENT
  Age: 39 Year
  Sex: Male
  Weight: 102 kg

DRUGS (4)
  1. AUGMENTIN '125' [Concomitant]
  2. ALLEGRA [Concomitant]
  3. VICODIN [Concomitant]
  4. BACTRIM DS [Suspect]
     Indication: SKIN INFECTION
     Dosage: 1 TABLET UNKNOWN PO
     Route: 048
     Dates: start: 20101222, end: 20110105

REACTIONS (10)
  - LIP SWELLING [None]
  - LIVER FUNCTION TEST ABNORMAL [None]
  - RENAL FAILURE [None]
  - DERMATITIS EXFOLIATIVE [None]
  - BONE MARROW FAILURE [None]
  - PYREXIA [None]
  - CONDITION AGGRAVATED [None]
  - OEDEMA MOUTH [None]
  - SKIN LESION [None]
  - LYMPHADENOPATHY [None]
